FAERS Safety Report 8263268-X (Version None)
Quarter: 2012Q2

REPORT INFORMATION
  Report Type: 
  Country: None (occurrence: None)
  Receive Date: 20120405
  Receipt Date: 20120403
  Transmission Date: 20120825
  Serious: Yes (Death)
  Sender: FDA-Public Use
  Company Number: US-PFIZER INC-2012031986

PATIENT
  Sex: Male

DRUGS (8)
  1. ACETYLSALICYLIC ACID [Concomitant]
  2. IBUPROFEN (ADVIL) [Concomitant]
  3. LEVOTHROID [Concomitant]
  4. OMEPRAZOLE [Concomitant]
  5. ALLOPURINOL [Concomitant]
  6. LYRICA [Suspect]
     Indication: NEURALGIA
     Dosage: 100 MG, 3X/DAY
     Route: 048
  7. FUROSEMIDE [Concomitant]
     Dosage: UNK
  8. PRAVASTATIN [Concomitant]
     Dosage: UNK

REACTIONS (1)
  - DEATH [None]
